FAERS Safety Report 7424091-9 (Version None)
Quarter: 2011Q2

REPORT INFORMATION
  Report Type: 
  Country: None (occurrence: None)
  Receive Date: 20110419
  Receipt Date: 20110415
  Transmission Date: 20111010
  Serious: Yes (Death, Other)
  Sender: FDA-Public Use
  Company Number: PHHY2011GB31594

PATIENT
  Age: 36 Year
  Sex: Male

DRUGS (22)
  1. TRAZODONE [Interacting]
     Dosage: 100 MG, QD
  2. BENZONATATE [Concomitant]
     Dosage: UNK
  3. ACETAMINOPHEN [Concomitant]
     Dosage: UNK
  4. DOCUSATE SODIUM [Concomitant]
  5. LORAZEPAM [Concomitant]
  6. METOCLOPRAMIDE [Concomitant]
     Dosage: UNK
  7. FOLIC ACID [Concomitant]
     Dosage: UNK
  8. LITHIUM [Concomitant]
     Dosage: 1200 MG, UNK
  9. METOPROLOL [Concomitant]
  10. VITAMIN B COMPLEX CAP [Concomitant]
     Dosage: UNK
  11. QUETIAPINE [Interacting]
     Dosage: 100 MG TO 150 MG DAILY
  12. VENLAFAXINE HCL [Interacting]
     Dosage: 300 MG, QD
  13. CHLORDIAZEPOXIDE [Concomitant]
  14. FAMOTIDINE [Concomitant]
     Dosage: UNK
  15. RANITIDINE [Concomitant]
     Dosage: UNK
  16. VENLAFAXINE HCL [Interacting]
     Dosage: 225 MG, QD
  17. TRAMADOL [Suspect]
     Dosage: 50 MG, UNK
  18. TEMAZEPAM [Concomitant]
  19. TRAZODONE [Interacting]
     Dosage: 75 MG, QD
  20. ENALAPRIL [Concomitant]
     Dosage: UNK
  21. LANSOPRAZOLE [Concomitant]
  22. FUROSEMIDE [Concomitant]

REACTIONS (4)
  - TREMOR [None]
  - DRUG INTERACTION [None]
  - INSOMNIA [None]
  - CONVULSION [None]
